FAERS Safety Report 5147738-9 (Version None)
Quarter: 2006Q4

REPORT INFORMATION
  Report Type: 
  Country: None (occurrence: None)
  Receive Date: 20061106
  Receipt Date: 20041124
  Transmission Date: 20070319
  Serious: Yes (Hospitalization)
  Sender: FDA-Public Use
  Company Number: 2004011652

PATIENT
  Age: 37 Year
  Sex: Male
  Weight: 58 kg

DRUGS (6)
  1. TRIFLUCAN (FLUCONAZOLE) [Suspect]
     Indication: ILL-DEFINED DISORDER
     Dosage: ORAL
     Route: 048
     Dates: start: 20031229, end: 20040112
  2. DALACINE IV (CLINDAMYCIN) [Suspect]
     Indication: ILL-DEFINED DISORDER
     Dosage: 2.4 GRAM (1 IN 1 D), INTRAVENOUS
     Route: 042
     Dates: start: 20031231, end: 20040105
  3. SULFADIAZINE [Suspect]
     Indication: ILL-DEFINED DISORDER
     Dosage: 4 GRAM (1 IN 1 D), ORAL
     Route: 048
     Dates: start: 20031229
  4. PYRIMETHAMINE TAB [Suspect]
     Indication: ILL-DEFINED DISORDER
     Dosage: 50 MG (1 IN 1 D), ORAL
     Route: 048
     Dates: start: 20031229, end: 20040113
  5. AMOXICILLIN + CLAVULANATE POTASSIUM [Suspect]
     Indication: LUNG DISORDER
     Dosage: ORAL
     Route: 048
     Dates: start: 20031230, end: 20040108
  6. CEFUROXIME [Suspect]
     Indication: ILL-DEFINED DISORDER
     Dosage: 1 GRAM (1 IN 1 D), ORAL
     Route: 048
     Dates: start: 20031229, end: 20040113

REACTIONS (8)
  - CONJUNCTIVAL DISORDER [None]
  - EYE INJURY [None]
  - HAEMOGLOBIN DECREASED [None]
  - INFLAMMATION [None]
  - LYMPHOCYTE COUNT DECREASED [None]
  - OEDEMA PERIPHERAL [None]
  - RASH ERYTHEMATOUS [None]
  - TOXIC EPIDERMAL NECROLYSIS [None]
